FAERS Safety Report 6064056-5 (Version None)
Quarter: 2009Q1

REPORT INFORMATION
  Report Type: 
  Country: None (occurrence: None)
  Receive Date: 20090204
  Receipt Date: 20090129
  Transmission Date: 20090719
  Serious: Yes (Death, Other)
  Sender: FDA-Public Use
  Company Number: JP-ASTRAZENECA-2008AP09806

PATIENT
  Age: 78 Year
  Sex: Male

DRUGS (12)
  1. MEROPEN [Suspect]
     Indication: URINARY TRACT INFECTION
     Route: 041
     Dates: start: 20081203, end: 20081208
  2. MEROPEN [Suspect]
     Indication: PYREXIA
     Route: 041
     Dates: start: 20081203, end: 20081208
  3. MEROPEN [Suspect]
     Indication: SEPSIS
     Route: 041
     Dates: start: 20081203, end: 20081208
  4. FUTHAN [Concomitant]
     Indication: DISSEMINATED INTRAVASCULAR COAGULATION
  5. GASTER [Concomitant]
  6. FLUMARIN [Concomitant]
     Indication: PYELONEPHRITIS
     Dates: start: 20081126, end: 20081202
  7. FENYTAREN [Concomitant]
     Indication: ANTIPYRESIS
     Dates: start: 20081203, end: 20081213
  8. THYRADIN [Concomitant]
     Indication: HYPOTHYROIDISM
     Dates: start: 20081203, end: 20081209
  9. PROBITOR [Concomitant]
     Indication: DISSEMINATED INTRAVASCULAR COAGULATION
     Dates: start: 20081203, end: 20081209
  10. OMEPRAL [Concomitant]
     Indication: GASTROINTESTINAL HAEMORRHAGE
     Dates: start: 20081208, end: 20081214
  11. OMEPRAL [Concomitant]
     Indication: PROPHYLAXIS
     Dates: start: 20081208, end: 20081214
  12. GRAN [Concomitant]
     Indication: WHITE BLOOD CELL COUNT DECREASED
     Dates: start: 20081208, end: 20081214

REACTIONS (2)
  - LEUKOPENIA [None]
  - PLATELET COUNT DECREASED [None]
